FAERS Safety Report 10410600 (Version 1)
Quarter: 2014Q3

REPORT INFORMATION
  Report Type: Spontaneous
  Country: US (occurrence: US)
  Receive Date: 20140826
  Receipt Date: 20140826
  Transmission Date: 20150326
  Serious: No
  Sender: FDA-Public Use
  Company Number: US-BRISTOL-MYERS SQUIBB COMPANY-21136759

PATIENT
  Age: 34 Year
  Sex: Female

DRUGS (2)
  1. KENALOG-40 [Suspect]
     Active Substance: TRIAMCINOLONE ACETONIDE
     Indication: ARTHROPATHY
     Dosage: INJECTION?2 SHOTS OF 15MG
  2. KLONOPIN [Concomitant]
     Active Substance: CLONAZEPAM
     Indication: ANXIETY

REACTIONS (4)
  - Nausea [Unknown]
  - Insomnia [Unknown]
  - Anxiety [Unknown]
  - Formication [Unknown]

NARRATIVE: CASE EVENT DATE: 20140624
